FAERS Safety Report 4407547-2 (Version None)
Quarter: 2004Q3

REPORT INFORMATION
  Report Type: 
  Country: None (occurrence: None)
  Receive Date: 20040721
  Receipt Date: 20040615
  Transmission Date: 20050211
  Serious: Yes (Hospitalization)
  Sender: FDA-Public Use
  Company Number: GBWYE914219JUL04

PATIENT
  Age: 21 Year
  Sex: Female

DRUGS (1)
  1. ADVIL [Suspect]
     Dosage: 8 G

REACTIONS (3)
  - COAGULATION TIME PROLONGED [None]
  - DRUG EXPOSURE DURING PREGNANCY [None]
  - OVERDOSE [None]
